FAERS Safety Report 5405240-0 (Version None)
Quarter: 2007Q3

REPORT INFORMATION
  Report Type: 
  Country: None (occurrence: None)
  Receive Date: 20070803
  Receipt Date: 20070724
  Transmission Date: 20080115
  Serious: Yes (Hospitalization)
  Sender: FDA-Public Use
  Company Number: FR-ROCHE-508756

PATIENT
  Age: 62 Year
  Sex: Male

DRUGS (1)
  1. LARIAM [Suspect]
     Indication: MALARIA
     Dosage: FIRST THREE TABLETS, THEN SIX HOURS LATER TWO TABLETS, THEN SIX HOURS LATER ONE TABLET.
     Route: 048
     Dates: start: 20070521, end: 20070522

REACTIONS (1)
  - CEREBELLAR ATAXIA [None]
